FAERS Safety Report 9850465 (Version 1)
Quarter: 2013Q4

REPORT INFORMATION
  Report Type: Spontaneous
  Country: US (occurrence: None)
  Receive Date: 20131226
  Receipt Date: 20131226
  Transmission Date: 20140711
  Serious: Yes (Disabling, Other)
  Sender: FDA-Public Use
  Company Number: PHEH2012US008924

PATIENT
  Age: 57 Year
  Sex: Female
  Weight: 57.7 kg

DRUGS (4)
  1. AFINITOR (RAD) TABLET, 10MG [Suspect]
     Indication: BREAST CANCER
     Route: 048
     Dates: start: 20120321, end: 20120515
  2. AROMASIN (EXEMESTANE) [Concomitant]
  3. LOMOTIL (ATROPINE SULFATE, DIPHENOXYLATE HYDROCHLORIDE) [Concomitant]
  4. LOPERAMIDE (LOPERAMIDE) [Concomitant]

REACTIONS (8)
  - Swelling [None]
  - Diarrhoea [None]
  - Mucosal inflammation [None]
  - Blood potassium decreased [None]
  - Neoplasm [None]
  - Stomatitis [None]
  - Weight decreased [None]
  - Malignant neoplasm progression [None]
